FAERS Safety Report 16221312 (Version 1)
Quarter: 2019Q2

REPORT INFORMATION
  Report Type: Spontaneous
  Country: US (occurrence: US)
  Receive Date: 20190422
  Receipt Date: 20190422
  Transmission Date: 20190711
  Serious: No
  Sender: FDA-Public Use
  Company Number: US-AMGEN-USASP2019062920

PATIENT
  Age: 69 Year
  Sex: Female

DRUGS (6)
  1. METHOTREXATE. [Concomitant]
     Active Substance: METHOTREXATE
     Dosage: UNK
  2. ENBREL [Suspect]
     Active Substance: ETANERCEPT
     Indication: RHEUMATOID ARTHRITIS
     Dosage: 50 MILLIGRAM, QWK
     Route: 058
  3. ALENDRONATE [Concomitant]
     Active Substance: ALENDRONATE SODIUM
     Dosage: 5 MILLIGRAM
  4. ALENDRONATE SODIUM. [Concomitant]
     Active Substance: ALENDRONATE SODIUM
     Dosage: UNK
  5. METOPROLOL SUCCINATE. [Concomitant]
     Active Substance: METOPROLOL SUCCINATE
     Dosage: UNK ER (EXTENDED RELEASE)
  6. FOLIC ACID. [Concomitant]
     Active Substance: FOLIC ACID
     Dosage: UNK

REACTIONS (1)
  - Product dose omission [Unknown]
